FAERS Safety Report 13497654 (Version 6)
Quarter: 2017Q3

REPORT INFORMATION
  Report Type: Spontaneous
  Country: US (occurrence: US)
  Receive Date: 20170428
  Receipt Date: 20170718
  Transmission Date: 20171127
  Serious: Yes (Hospitalization, Other)
  Sender: FDA-Public Use
  Company Number: US-BAUSCH-BL-2017-010894

PATIENT
  Age: 86 Year
  Sex: Female
  Weight: 61.7 kg

DRUGS (7)
  1. LACTULOSE. [Suspect]
     Active Substance: LACTULOSE
     Dosage: LACTULOSE DOSE WAS INCREASED
     Route: 065
  2. LACTULOSE. [Suspect]
     Active Substance: LACTULOSE
     Dosage: LACTULOSE DOSE WAS DECREASED
     Route: 065
  3. LACTULOSE. [Suspect]
     Active Substance: LACTULOSE
     Dosage: LACTULOSE DOSE WAS REDUCED TO TWICE DAILY
     Route: 065
  4. XIFAXAN [Suspect]
     Active Substance: RIFAXIMIN
     Indication: HEPATIC CIRRHOSIS
     Route: 048
     Dates: start: 201703
  5. XIFAXAN [Suspect]
     Active Substance: RIFAXIMIN
     Indication: HEPATIC ENCEPHALOPATHY
  6. LACTULOSE. [Suspect]
     Active Substance: LACTULOSE
     Indication: LIVER DISORDER
     Route: 065
  7. IRON [Concomitant]
     Active Substance: IRON
     Indication: PRODUCT USED FOR UNKNOWN INDICATION

REACTIONS (9)
  - Pain [Recovering/Resolving]
  - Pelvic fracture [Recovering/Resolving]
  - Hepatic encephalopathy [Recovering/Resolving]
  - Clostridium difficile infection [Unknown]
  - Hepatic cirrhosis [Recovered/Resolved]
  - Fall [Recovering/Resolving]
  - Amnesia [Recovering/Resolving]
  - Treatment noncompliance [Unknown]
  - Asthenia [Recovering/Resolving]

NARRATIVE: CASE EVENT DATE: 201702
